FAERS Safety Report 15278659 (Version 1)
Quarter: 2018Q4

REPORT INFORMATION
  Report Type: Spontaneous
  Country: ES (occurrence: ES)
  Receive Date: 20180815
  Receipt Date: 20180815
  Transmission Date: 20190204
  Serious: Yes (Hospitalization)
  Sender: FDA-Public Use
  Company Number: ES-TEVA-2018-ES-941058

PATIENT
  Age: 72 Year
  Sex: Male

DRUGS (5)
  1. JANUMET [Suspect]
     Active Substance: METFORMIN HYDROCHLORIDE\SITAGLIPTIN PHOSPHATE
     Indication: DIABETES MELLITUS
     Route: 065
     Dates: start: 20180302, end: 20180526
  2. LIXIANA 60 MG COMPRIMIDOS RECUBIERTOS CON PELICULA [Concomitant]
     Indication: ATRIAL FIBRILLATION
     Dosage: 60 MILLIGRAM DAILY;
     Dates: start: 2018, end: 20180526
  3. IBUPROFENO (1769A) [Suspect]
     Active Substance: IBUPROFEN
     Indication: PAIN
     Route: 065
     Dates: start: 20180328, end: 20180626
  4. OLMETEC PLUS 20 MG/12,5 MG COMPRIMIDOS RECUBIERTOS CON PELICULA [Suspect]
     Active Substance: HYDROCHLOROTHIAZIDE\OLMESARTAN MEDOXOMIL
     Indication: HYPERTENSION
     Dosage: 1 DOSAGE FORMS DAILY;
     Route: 065
     Dates: start: 20131003, end: 20180526
  5. DICLOFENACO 1 MG/ML COLIRIO [Concomitant]
     Dates: start: 20180415

REACTIONS (3)
  - Hepatitis [Recovered/Resolved]
  - Acute kidney injury [Recovered/Resolved]
  - Lactic acidosis [Recovered/Resolved]

NARRATIVE: CASE EVENT DATE: 20180526
